FAERS Safety Report 20746001 (Version 6)
Quarter: 2022Q3

REPORT INFORMATION
  Report Type: Report from Study
  Country: US (occurrence: US)
  Receive Date: 20220425
  Receipt Date: 20220801
  Transmission Date: 20221026
  Serious: No
  Sender: FDA-Public Use
  Company Number: US-NOVARTISTESTPH-NVSC2022US094996

PATIENT
  Sex: Female

DRUGS (1)
  1. ENTRESTO [Suspect]
     Active Substance: SACUBITRIL\VALSARTAN
     Indication: Cardiac failure chronic
     Dosage: 24/26 MG, BID
     Route: 048
     Dates: start: 201712

REACTIONS (6)
  - Visual impairment [Unknown]
  - Stress [Unknown]
  - Feeling abnormal [Unknown]
  - Joint swelling [Unknown]
  - Weight fluctuation [Recovering/Resolving]
  - COVID-19 [Unknown]
